FAERS Safety Report 9093396 (Version 1)
Quarter: 2013Q1

REPORT INFORMATION
  Report Type: Report from Study
  Country: US (occurrence: US)
  Receive Date: 20130131
  Receipt Date: 20130131
  Transmission Date: 20140127
  Serious: Yes (Other)
  Sender: FDA-Public Use
  Company Number: US-ABBOTT-12P-163-1012861-00

PATIENT
  Age: 49 Year
  Sex: Female

DRUGS (2)
  1. HUMIRA PEN [Suspect]
     Indication: ARTHROPATHY
     Route: 058
  2. SYNVISC [Concomitant]
     Indication: PRODUCT USED FOR UNKNOWN INDICATION
     Dosage: 6 ML - ONE SYRINGE INTO EACH KNEE AT MD OFFICE

REACTIONS (1)
  - Knee arthroplasty [Unknown]
